FAERS Safety Report 24009313 (Version 1)
Quarter: 2024Q2

REPORT INFORMATION
  Report Type: Spontaneous
  Country: US (occurrence: US)
  Receive Date: 20240625
  Receipt Date: 20240625
  Transmission Date: 20240716
  Serious: Yes (Hospitalization)
  Sender: FDA-Public Use
  Company Number: US-002147023-NVSC2024US130686

PATIENT
  Sex: Male
  Weight: 54.88 kg

DRUGS (4)
  1. PLUVICTO [Suspect]
     Active Substance: LUTETIUM LU-177 VIPIVOTIDE TETRAXETAN
     Indication: Prostate cancer
     Dosage: 200 MCI (EVERY 6 WEEKS)
     Route: 042
  2. PLUVICTO [Suspect]
     Active Substance: LUTETIUM LU-177 VIPIVOTIDE TETRAXETAN
     Dosage: 200 MCI (EVERY 6 WEEKS)
     Route: 042
  3. PLUVICTO [Suspect]
     Active Substance: LUTETIUM LU-177 VIPIVOTIDE TETRAXETAN
     Dosage: 200 MCI (EVERY 6 WEEKS)
     Route: 042
  4. PLUVICTO [Suspect]
     Active Substance: LUTETIUM LU-177 VIPIVOTIDE TETRAXETAN
     Dosage: 200 MCI (EVERY 6 WEEKS) 4TH DOSE
     Route: 042

REACTIONS (1)
  - Spinal cord compression [Unknown]
